FAERS Safety Report 9973025 (Version 1)
Quarter: 2014Q1

REPORT INFORMATION
  Report Type: Spontaneous
  Country: US (occurrence: None)
  Receive Date: 20140128
  Receipt Date: 20140128
  Transmission Date: 20141002
  Serious: Yes (Hospitalization)
  Sender: FDA-Public Use
  Company Number: A-US2013-81981

PATIENT
  Age: 63 Year
  Sex: Female

DRUGS (2)
  1. TRACLEER (BOSENTAN) TABLET [Suspect]
     Indication: PULMONARY ARTERIAL HYPERTENSION
     Route: 048
  2. REMODULIN (TREPROSTINIL SODIUM) [Suspect]

REACTIONS (6)
  - Fluid overload [None]
  - Platelet count decreased [None]
  - Vomiting [None]
  - Nausea [None]
  - Hypotension [None]
  - Weight increased [None]
